FAERS Safety Report 11183750 (Version 1)
Quarter: 2015Q2

REPORT INFORMATION
  Report Type: Spontaneous
  Country: GB (occurrence: GB)
  Receive Date: 20150612
  Receipt Date: 20150612
  Transmission Date: 20150821
  Serious: Yes (Other)
  Sender: FDA-Public Use
  Company Number: GB-ACCORD-031309

PATIENT
  Age: 83 Year
  Sex: Male
  Weight: 140 kg

DRUGS (3)
  1. METHOTREXATE [Suspect]
     Active Substance: METHOTREXATE
     Indication: RHEUMATOID ARTHRITIS
     Route: 051
  2. WARFARIN [Concomitant]
     Active Substance: WARFARIN
  3. TILDIEM [Concomitant]
     Active Substance: DILTIAZEM HYDROCHLORIDE

REACTIONS (3)
  - Off label use [Unknown]
  - Lethargy [Unknown]
  - Hypersomnia [Unknown]
